FAERS Safety Report 4417120-8 (Version None)
Quarter: 2004Q3

REPORT INFORMATION
  Report Type: 
  Country: None (occurrence: None)
  Receive Date: 20040802
  Receipt Date: 20040714
  Transmission Date: 20050211
  Serious: Yes (Other)
  Sender: FDA-Public Use
  Company Number: PHEH2004US07675

PATIENT

DRUGS (1)
  1. VISUDYNE [Suspect]
     Indication: MACULAR DEGENERATION

REACTIONS (3)
  - CHEST PAIN [None]
  - INFUSION RELATED REACTION [None]
  - MYOCARDIAL ISCHAEMIA [None]
